FAERS Safety Report 9238160 (Version 1)
Quarter: 2013Q2

REPORT INFORMATION
  Report Type: Spontaneous
  Country: US (occurrence: None)
  Receive Date: 20130415
  Receipt Date: 20130415
  Transmission Date: 20140414
  Serious: Yes (Other)
  Sender: FDA-Public Use
  Company Number: 2013SA037225

PATIENT
  Age: 43 Year
  Sex: Female

DRUGS (1)
  1. CORTIZONE [Suspect]
     Indication: PRODUCT USED FOR UNKNOWN INDICATION
     Dates: start: 20130406

REACTIONS (1)
  - Drug hypersensitivity [None]
